FAERS Safety Report 6782647-0 (Version None)
Quarter: 2010Q2

REPORT INFORMATION
  Report Type: 
  Country: None (occurrence: None)
  Receive Date: 20100621
  Receipt Date: 20100611
  Transmission Date: 20101027
  Serious: Yes (Other)
  Sender: FDA-Public Use
  Company Number: US-AMGEN-QUU417875

PATIENT
  Sex: Male
  Weight: 102.2 kg

DRUGS (8)
  1. NPLATE [Suspect]
     Indication: IDIOPATHIC THROMBOCYTOPENIC PURPURA
     Dates: start: 20090929, end: 20100121
  2. CYCLOPHOSPHAMIDE [Concomitant]
     Dates: start: 20090929
  3. DANAZOL [Concomitant]
     Dates: end: 20091217
  4. PREDNISONE [Concomitant]
     Dates: end: 20091217
  5. DILAUDID [Concomitant]
  6. MS CONTIN [Concomitant]
     Dates: end: 20090114
  7. MS CONTIN [Concomitant]
     Dates: start: 20100114
  8. OXYGEN [Concomitant]

REACTIONS (25)
  - ACCESSORY SPLEEN [None]
  - ASTHENIA [None]
  - BLISTER [None]
  - BLOOD BLISTER [None]
  - BODY TEMPERATURE INCREASED [None]
  - CHEST PAIN [None]
  - CONJUNCTIVAL HAEMORRHAGE [None]
  - DECREASED APPETITE [None]
  - DERMAL CYST [None]
  - DIFFUSE VASCULITIS [None]
  - DRUG HYPERSENSITIVITY [None]
  - DYSPNOEA [None]
  - ERYTHEMA [None]
  - FACIAL BONES FRACTURE [None]
  - HAEMATOMA [None]
  - HAEMORRHAGE [None]
  - HEART RATE INCREASED [None]
  - HYPOTENSION [None]
  - PLEURAL EFFUSION [None]
  - RASH MACULO-PAPULAR [None]
  - RASH PUSTULAR [None]
  - SKIN LESION [None]
  - THROMBOCYTOPENIA [None]
  - URTICARIA [None]
  - VASCULITIC RASH [None]
